FAERS Safety Report 6363457-5 (Version None)
Quarter: 2009Q3

REPORT INFORMATION
  Report Type: 
  Country: None (occurrence: None)
  Receive Date: 20090919
  Receipt Date: 20090629
  Transmission Date: 20100115
  Serious: No
  Sender: FDA-Public Use
  Company Number: US-ABBOTT-09P-163-0582875-00

PATIENT
  Sex: Female
  Weight: 61.29 kg

DRUGS (11)
  1. HUMIRA [Suspect]
     Indication: RHEUMATOID ARTHRITIS
     Route: 058
     Dates: start: 20081223
  2. METHOTREXATE [Concomitant]
     Indication: DRUG USE FOR UNKNOWN INDICATION
  3. FOLIC ACID [Concomitant]
     Indication: DRUG USE FOR UNKNOWN INDICATION
  4. NAPROSYN [Concomitant]
     Indication: DRUG USE FOR UNKNOWN INDICATION
  5. OMEPRAZOLE [Concomitant]
     Indication: DRUG USE FOR UNKNOWN INDICATION
  6. ADVIR [Concomitant]
     Indication: DRUG USE FOR UNKNOWN INDICATION
  7. HYZAAR [Concomitant]
     Indication: DRUG USE FOR UNKNOWN INDICATION
  8. ALENDRONATE SODIUM [Concomitant]
     Indication: BONE DISORDER
  9. THEOPHYLLINE [Concomitant]
     Indication: DRUG USE FOR UNKNOWN INDICATION
  10. SPIRIVA [Concomitant]
     Indication: DRUG USE FOR UNKNOWN INDICATION
     Route: 055
  11. MVI CALCIUM/D [Concomitant]
     Indication: DRUG USE FOR UNKNOWN INDICATION

REACTIONS (1)
  - DRUG DOSE OMISSION [None]
